FAERS Safety Report 8540231-2 (Version None)
Quarter: 2012Q3

REPORT INFORMATION
  Report Type: 
  Country: None (occurrence: None)
  Receive Date: 20120726
  Receipt Date: 20120719
  Transmission Date: 20120928
  Serious: Yes (Other)
  Sender: FDA-Public Use
  Company Number: US-BAXTER-2012BH007576

PATIENT
  Sex: Female
  Weight: 91.708 kg

DRUGS (2)
  1. DIANEAL LOW CALCIUM W/ DEXTROSE 1.5% [Suspect]
     Route: 033
  2. DIANEAL [Suspect]
     Route: 033

REACTIONS (2)
  - CHEST PAIN [None]
  - ABDOMINAL DISTENSION [None]
